FAERS Safety Report 5663731-1 (Version None)
Quarter: 2008Q1

REPORT INFORMATION
  Report Type: 
  Country: None (occurrence: None)
  Receive Date: 20080311
  Receipt Date: 20080303
  Transmission Date: 20080703
  Serious: Yes (Death, Life-Threatening, Other)
  Sender: FDA-Public Use
  Company Number: 45774

PATIENT
  Age: 26 Year
  Sex: Male

DRUGS (1)
  1. AMIKACIN SULFATE [Suspect]
     Indication: TUBERCULOSIS

REACTIONS (2)
  - HEARING IMPAIRED [None]
  - RENAL FAILURE [None]
